FAERS Safety Report 25875946 (Version 1)
Quarter: 2025Q4

REPORT INFORMATION
  Report Type: Spontaneous
  Country: US (occurrence: US)
  Receive Date: 20251003
  Receipt Date: 20251003
  Transmission Date: 20260119
  Serious: Yes (Death, Hospitalization)
  Sender: LEXICON PHARMACEUTICALS
  Company Number: US-LEX-000815

PATIENT
  Age: 75 Year
  Sex: Male

DRUGS (1)
  1. INPEFA [Suspect]
     Active Substance: SOTAGLIFLOZIN
     Indication: Product used for unknown indication
     Route: 048
     Dates: start: 20241113, end: 20250924

REACTIONS (4)
  - Death [Fatal]
  - Oxygen saturation decreased [Unknown]
  - Cataract [Unknown]
  - Joint injury [Unknown]

NARRATIVE: CASE EVENT DATE: 20250924
